FAERS Safety Report 8062297-9 (Version None)
Quarter: 2012Q1

REPORT INFORMATION
  Report Type: 
  Country: None (occurrence: None)
  Receive Date: 20120123
  Receipt Date: 20120117
  Transmission Date: 20120608
  Serious: No
  Sender: FDA-Public Use
  Company Number: US-PFIZER INC-2011314343

PATIENT
  Sex: Male
  Weight: 33 kg

DRUGS (8)
  1. LISINOPRIL [Concomitant]
     Dosage: 20, DAILY
  2. ASPIRIN [Concomitant]
     Dosage: 81, ONCE DAILY
  3. COREG [Concomitant]
     Dosage: 24, 2XDAY
  4. TIKOSYN [Suspect]
     Indication: ATRIAL FIBRILLATION
     Dosage: 240 MG, 2X/DAY
     Route: 048
     Dates: start: 20110919
  5. LASIX [Concomitant]
     Dosage: 40, DAILY
  6. PRADAXA [Concomitant]
     Dosage: 140, 2XDAY
  7. AMBIEN [Concomitant]
     Dosage: 5, EVERY NIGHT
  8. ZOCOR [Concomitant]
     Dosage: 40, DAILY

REACTIONS (1)
  - NASOPHARYNGITIS [None]
